FAERS Safety Report 8503862-1 (Version None)
Quarter: 2012Q3

REPORT INFORMATION
  Report Type: 
  Country: None (occurrence: None)
  Receive Date: 20120711
  Receipt Date: 20120629
  Transmission Date: 20120928
  Serious: Yes (Death, Hospitalization, Other)
  Sender: FDA-Public Use
  Company Number: JP-BRISTOL-MYERS SQUIBB COMPANY-16732125

PATIENT
  Age: 71 Year
  Sex: Female
  Weight: 46 kg

DRUGS (10)
  1. TAXOL [Suspect]
     Indication: OVARIAN CANCER
     Route: 041
     Dates: start: 20120525, end: 20120525
  2. PRIMPERAN TAB [Concomitant]
     Dosage: TABS
  3. ZANTAC [Concomitant]
     Dosage: INJ
  4. INOVAN [Concomitant]
     Dosage: 1DF= 0.3% SYRINGE
  5. CARBOPLATIN [Suspect]
     Indication: OVARIAN CANCER
     Route: 041
     Dates: start: 20120525, end: 20120525
  6. POLARAMINE [Concomitant]
     Dosage: INJ
  7. DECADRON [Concomitant]
     Dosage: INJ
  8. NEUTROGIN [Concomitant]
     Dosage: INJ
  9. MAXIPIME [Concomitant]
  10. GRANISETRON [Concomitant]
     Dosage: INJ

REACTIONS (7)
  - WHITE BLOOD CELL COUNT DECREASED [None]
  - RENAL FAILURE ACUTE [None]
  - PYREXIA [None]
  - HYPOTENSION [None]
  - NEUTROPHIL COUNT DECREASED [None]
  - ABDOMINAL PAIN [None]
  - NAUSEA [None]
